FAERS Safety Report 7168288-4 (Version None)
Quarter: 2010Q4

REPORT INFORMATION
  Report Type: 
  Country: None (occurrence: None)
  Receive Date: 20101216
  Receipt Date: 20101208
  Transmission Date: 20110411
  Serious: Yes (Hospitalization, Other)
  Sender: FDA-Public Use
  Company Number: CA-ABBOTT-10P-028-0690496-00

PATIENT
  Age: 26 Year
  Sex: Female
  Weight: 98.518 kg

DRUGS (4)
  1. HUMIRA [Suspect]
     Indication: PSORIATIC ARTHROPATHY
     Route: 058
  2. METHOTREXATE [Concomitant]
     Indication: PRODUCT USED FOR UNKNOWN INDICATION
     Route: 058
  3. DICLOFENAC W/MISOPROSTOL [Concomitant]
     Indication: PRODUCT USED FOR UNKNOWN INDICATION
     Route: 048
  4. BIRTH CONTROL PILL (NOT SPECIFIED) [Concomitant]
     Indication: CONTRACEPTION
     Route: 048

REACTIONS (4)
  - BLINDNESS [None]
  - DEMYELINATION [None]
  - HEMIPARESIS [None]
  - NEUROLOGICAL SYMPTOM [None]
